FAERS Safety Report 16898443 (Version 1)
Quarter: 2019Q4

REPORT INFORMATION
  Report Type: Spontaneous
  Country: NZ (occurrence: NZ)
  Receive Date: 20191009
  Receipt Date: 20191009
  Transmission Date: 20200122
  Serious: Yes (Other)
  Sender: FDA-Public Use
  Company Number: NZ-MYLANLABS-2019M1093289

PATIENT
  Sex: Female

DRUGS (1)
  1. CLOZARIL [Suspect]
     Active Substance: CLOZAPINE
     Indication: SCHIZOPHRENIA
     Dosage: UNK
     Route: 048
     Dates: start: 19990325

REACTIONS (5)
  - Weight increased [Unknown]
  - Salivary hypersecretion [Unknown]
  - Antipsychotic drug level increased [Unknown]
  - Constipation [Unknown]
  - Cellulitis [Unknown]
